FAERS Safety Report 4293305-9 (Version None)
Quarter: 2004Q1

REPORT INFORMATION
  Report Type: 
  Country: None (occurrence: None)
  Receive Date: 20040210
  Receipt Date: 20040210
  Transmission Date: 20041129
  Serious: Yes (Life-Threatening)
  Sender: FDA-Public Use
  Company Number: None

PATIENT
  Age: 15 Year
  Sex: Female

DRUGS (1)
  1. INFED [Suspect]
     Indication: IRON DEFICIENCY ANAEMIA
     Dosage: 50 MG/30 ML IV IN NS (TEST DOSE)
     Route: 042
     Dates: start: 20031216

REACTIONS (2)
  - RESPIRATORY DEPRESSION [None]
  - SKIN DISCOLOURATION [None]
